FAERS Safety Report 9597793 (Version 1)
Quarter: 2013Q4

REPORT INFORMATION
  Report Type: Spontaneous
  Country: US (occurrence: US)
  Receive Date: 20131004
  Receipt Date: 20131004
  Transmission Date: 20140711
  Serious: No
  Sender: FDA-Public Use
  Company Number: US-AMGEN-USASP2013021177

PATIENT
  Age: 43 Year
  Sex: Female

DRUGS (7)
  1. ENBREL [Suspect]
     Indication: PRODUCT USED FOR UNKNOWN INDICATION
     Dosage: 50 MG, QWK
     Route: 058
  2. METFORMIN [Concomitant]
     Dosage: 1000 MG, UNK
  3. FOLIC ACID [Concomitant]
     Dosage: 1 MG, UNK
  4. ATORVASTATIN [Concomitant]
     Dosage: 20 MG, UNK
  5. VITAMIN D                          /00107901/ [Concomitant]
     Dosage: 1000 UNIT, UNK
  6. METHOTREXATE [Concomitant]
     Dosage: 1 G, UNK
  7. LEVOTHYROXIN [Concomitant]
     Dosage: 200 MUG, UNK

REACTIONS (1)
  - Contusion [Unknown]
